FAERS Safety Report 14144786 (Version 4)
Quarter: 2018Q2

REPORT INFORMATION
  Report Type: Spontaneous
  Country: DE (occurrence: DE)
  Receive Date: 20171031
  Receipt Date: 20180501
  Transmission Date: 20180711
  Serious: Yes (Other)
  Sender: FDA-Public Use
  Company Number: PHHY2017DE157359

PATIENT
  Sex: Female

DRUGS (2)
  1. RITALIN [Suspect]
     Active Substance: METHYLPHENIDATE HYDROCHLORIDE
     Indication: PRODUCT USED FOR UNKNOWN INDICATION
     Dosage: UNK
     Route: 048
  2. MAXIM (DIENOGEST\ETHINYL ESTRADIOL) [Interacting]
     Active Substance: DIENOGEST\ETHINYL ESTRADIOL
     Indication: ANOVULATORY CYCLE
     Route: 048

REACTIONS (5)
  - Abortion induced [None]
  - Pregnancy on oral contraceptive [Unknown]
  - Unintended pregnancy [Unknown]
  - Maternal exposure during pregnancy [Unknown]
  - Drug interaction [Unknown]

NARRATIVE: CASE EVENT DATE: 20170101
